FAERS Safety Report 7825728-2 (Version None)
Quarter: 2011Q4

REPORT INFORMATION
  Report Type: 
  Country: None (occurrence: None)
  Receive Date: 20111019
  Receipt Date: 20111011
  Transmission Date: 20120403
  Serious: Yes (Death, Other)
  Sender: FDA-Public Use
  Company Number: JP-ROCHE-804188

PATIENT
  Sex: Male

DRUGS (4)
  1. GRAMALIL [Concomitant]
     Route: 048
  2. D-ALFA [Concomitant]
     Route: 048
  3. LASIX [Concomitant]
     Route: 048
  4. MIRCERA [Suspect]
     Indication: NEPHROGENIC ANAEMIA
     Route: 058
     Dates: start: 20110816, end: 20110919

REACTIONS (2)
  - PNEUMONIA ASPIRATION [None]
  - CHOKING [None]
